FAERS Safety Report 25511985 (Version 1)
Quarter: 2025Q3

REPORT INFORMATION
  Report Type: Spontaneous
  Country: US (occurrence: US)
  Receive Date: 20250703
  Receipt Date: 20250703
  Transmission Date: 20251021
  Serious: No
  Sender: RADIUS PHARM
  Company Number: US-RADIUS HEALTH INC.-2024US004808

PATIENT
  Age: 62 Year
  Sex: Female

DRUGS (3)
  1. TYMLOS [Suspect]
     Active Substance: ABALOPARATIDE
     Indication: Osteoporosis
     Route: 058
     Dates: start: 20240510
  2. TYMLOS [Suspect]
     Active Substance: ABALOPARATIDE
     Dates: start: 20240510
  3. PREDNISONE [Concomitant]
     Active Substance: PREDNISONE
     Indication: Osteoporosis

REACTIONS (4)
  - Anxiety [Recovering/Resolving]
  - Dyspepsia [Unknown]
  - Heart rate increased [Recovering/Resolving]
  - Nausea [Unknown]

NARRATIVE: CASE EVENT DATE: 20240501
